FAERS Safety Report 9557546 (Version 1)
Quarter: 2013Q3

REPORT INFORMATION
  Report Type: Spontaneous
  Country: US (occurrence: None)
  Receive Date: 20130726
  Receipt Date: 20130726
  Transmission Date: 20140515
  Serious: Yes (Hospitalization)
  Sender: FDA-Public Use
  Company Number: UTC-029804

PATIENT
  Age: 72 Year
  Sex: Male
  Weight: 63.6 kg

DRUGS (2)
  1. REMODULIN (2.5 MILLIGRAM/MILLILITERS, INJECTION FOR INFUSION) (TREPROSTINIL SODIUM) [Suspect]
     Indication: COR PULMONALE CHRONIC
     Dosage: 57.6 UG/KG (0.04 UG/KG, 1 IN 1 MIN), INTRAVENOUS DRIP
     Dates: start: 20090904
  2. TRACLEER (BOSENTAN) [Concomitant]

REACTIONS (2)
  - Device related infection [None]
  - Injection site erythema [None]
